FAERS Safety Report 24932513 (Version 1)
Quarter: 2025Q1

REPORT INFORMATION
  Report Type: Spontaneous
  Country: CH (occurrence: CH)
  Receive Date: 20250205
  Receipt Date: 20250205
  Transmission Date: 20250408
  Serious: No
  Sender: EXELIXIS
  Company Number: CH-BRISTOL-MYERS SQUIBB COMPANY-2024-137386

PATIENT

DRUGS (14)
  1. CABOMETYX [Suspect]
     Active Substance: CABOZANTINIB S-MALATE
     Indication: Metastatic renal cell carcinoma
     Dates: start: 20240206
  2. CABOMETYX [Suspect]
     Active Substance: CABOZANTINIB S-MALATE
     Dates: start: 20240221
  3. CABOMETYX [Suspect]
     Active Substance: CABOZANTINIB S-MALATE
     Dates: start: 20240306
  4. CABOMETYX [Suspect]
     Active Substance: CABOZANTINIB S-MALATE
     Dates: start: 20240320
  5. CABOMETYX [Suspect]
     Active Substance: CABOZANTINIB S-MALATE
     Dates: start: 20240417
  6. CABOMETYX [Suspect]
     Active Substance: CABOZANTINIB S-MALATE
     Dates: start: 20240501
  7. CABOMETYX [Suspect]
     Active Substance: CABOZANTINIB S-MALATE
     Dates: start: 20240515
  8. OPDIVO [Suspect]
     Active Substance: NIVOLUMAB
     Indication: Metastatic renal cell carcinoma
     Dates: start: 20240206
  9. OPDIVO [Suspect]
     Active Substance: NIVOLUMAB
     Dates: start: 20240221
  10. OPDIVO [Suspect]
     Active Substance: NIVOLUMAB
     Dates: start: 20240306
  11. OPDIVO [Suspect]
     Active Substance: NIVOLUMAB
     Dates: start: 20240320
  12. OPDIVO [Suspect]
     Active Substance: NIVOLUMAB
     Dates: start: 20240417
  13. OPDIVO [Suspect]
     Active Substance: NIVOLUMAB
     Dates: start: 20240501
  14. OPDIVO [Suspect]
     Active Substance: NIVOLUMAB
     Dates: start: 20240515

REACTIONS (1)
  - Off label use [Unknown]
